FAERS Safety Report 13504047 (Version 1)
Quarter: 2017Q2

REPORT INFORMATION
  Report Type: Spontaneous
  Country: US (occurrence: US)
  Receive Date: 20170502
  Receipt Date: 20170502
  Transmission Date: 20170830
  Serious: Yes (Death, Life-Threatening, Hospitalization)
  Sender: FDA-Public Use
  Company Number: None

PATIENT
  Age: 59 Year
  Sex: Male
  Weight: 63 kg

DRUGS (4)
  1. MULTI VITAMIN [Concomitant]
     Active Substance: VITAMINS
  2. TECFEDERA [Concomitant]
  3. TYSABRI [Suspect]
     Active Substance: NATALIZUMAB
     Indication: MULTIPLE SCLEROSIS
     Dosage: ?          OTHER FREQUENCY:MONTHLY;?INTRAVENOUS (NOT OTHERWISE SPECIFIED)
     Route: 042
  4. AMPYRA [Concomitant]
     Active Substance: DALFAMPRIDINE

REACTIONS (8)
  - Seizure [None]
  - Anxiety [None]
  - Amnesia [None]
  - Blindness [None]
  - Multiple sclerosis relapse [None]
  - Progressive multifocal leukoencephalopathy [None]
  - Refraction disorder [None]
  - Eye disorder [None]

NARRATIVE: CASE EVENT DATE: 20160518
